FAERS Safety Report 11218707 (Version 1)
Quarter: 2015Q2

REPORT INFORMATION
  Report Type: Spontaneous
  Country: US (occurrence: US)
  Receive Date: 20150625
  Receipt Date: 20150625
  Transmission Date: 20150821
  Serious: Yes (Other)
  Sender: FDA-Public Use
  Company Number: US-MYLANLABS-2015M1019926

PATIENT

DRUGS (1)
  1. EPIPEN [Suspect]
     Active Substance: EPINEPHRINE
     Indication: ANAPHYLACTIC REACTION
     Dosage: ONCE
     Dates: start: 20150610, end: 20150610

REACTIONS (6)
  - Expired product administered [Recovered/Resolved]
  - Blood pressure decreased [Recovered/Resolved]
  - Injection site pallor [Recovered/Resolved]
  - Injection site discolouration [Not Recovered/Not Resolved]
  - Accidental exposure to product [Recovered/Resolved]
  - Loss of consciousness [Recovered/Resolved]

NARRATIVE: CASE EVENT DATE: 20150610
